FAERS Safety Report 9550027 (Version 1)
Quarter: 2013Q3

REPORT INFORMATION
  Report Type: Report from Study
  Country: US (occurrence: US)
  Receive Date: 20130924
  Receipt Date: 20130924
  Transmission Date: 20140515
  Serious: Yes (Hospitalization)
  Sender: FDA-Public Use
  Company Number: US-GLAXOSMITHKLINE-B0924601A

PATIENT
  Age: 52 Year
  Sex: Male
  Weight: 129 kg

DRUGS (14)
  1. ALBUTEROL [Suspect]
     Indication: PRODUCT USED FOR UNKNOWN INDICATION
     Dosage: 1AMP FOUR TIMES PER DAY
     Route: 055
     Dates: start: 20121030, end: 20130503
  2. TIOTROPIUM [Suspect]
     Indication: PRODUCT USED FOR UNKNOWN INDICATION
     Dosage: 18MCG PER DAY
     Route: 055
     Dates: start: 20130304
  3. BECLOMETHASONE [Suspect]
     Indication: PRODUCT USED FOR UNKNOWN INDICATION
     Dates: start: 20101210, end: 20130305
  4. TRUVADA [Concomitant]
     Indication: HIV INFECTION
     Dosage: 1TAB PER DAY
     Route: 048
     Dates: start: 200904
  5. DARUNAVIR [Concomitant]
     Indication: HIV INFECTION
     Dosage: 600MG TWICE PER DAY
     Route: 048
     Dates: start: 200904
  6. RITONAVIR [Concomitant]
     Indication: HIV INFECTION
     Dosage: 100MG TWICE PER DAY
     Route: 048
     Dates: start: 200904
  7. RALTEGRAVIR [Concomitant]
     Indication: HIV INFECTION
     Dosage: 400MG TWICE PER DAY
     Route: 048
     Dates: start: 200904
  8. FUROSEMIDE [Concomitant]
     Dosage: 80MG THREE TIMES PER DAY
     Route: 048
  9. SEROQUEL [Concomitant]
     Dosage: 100MG AS DIRECTED
     Route: 048
  10. POTASSIUM CHLORIDE [Concomitant]
     Dosage: 2TABS TWICE PER DAY
     Route: 048
  11. SALMETEROL + FLUTICASONE [Concomitant]
     Dosage: 1PUFF TWICE PER DAY
     Route: 055
     Dates: end: 20130802
  12. PRAVASTATIN [Concomitant]
     Dosage: 20MG PER DAY
     Route: 048
  13. VENLAFAXINE [Concomitant]
     Dosage: 150MG PER DAY
     Route: 048
  14. NO THERAPY-VIIV [Concomitant]
     Indication: HIV INFECTION

REACTIONS (1)
  - Cardiac failure congestive [Recovered/Resolved]
